FAERS Safety Report 22678468 (Version 8)
Quarter: 2025Q1

REPORT INFORMATION
  Report Type: Spontaneous
  Country: US (occurrence: US)
  Receive Date: 20230706
  Receipt Date: 20250224
  Transmission Date: 20250409
  Serious: No
  Sender: PFIZER
  Company Number: US-PFIZER INC-PV202300116163

PATIENT
  Age: 73 Year
  Sex: Female

DRUGS (7)
  1. IBRANCE [Suspect]
     Active Substance: PALBOCICLIB
     Indication: Breast cancer metastatic
     Route: 048
  2. IBRANCE [Suspect]
     Active Substance: PALBOCICLIB
  3. IBRANCE [Suspect]
     Active Substance: PALBOCICLIB
  4. IBRANCE [Suspect]
     Active Substance: PALBOCICLIB
  5. FULVESTRANT [Concomitant]
     Active Substance: FULVESTRANT
     Indication: Breast cancer metastatic
     Route: 030
  6. ZOMETA [Concomitant]
     Active Substance: ZOLEDRONIC ACID
     Indication: Breast cancer metastatic
  7. ZOMETA [Concomitant]
     Active Substance: ZOLEDRONIC ACID

REACTIONS (15)
  - Fatigue [Unknown]
  - Neoplasm progression [Unknown]
  - Feeling abnormal [Unknown]
  - Malaise [Unknown]
  - Headache [Unknown]
  - Discomfort [Unknown]
  - Constipation [Unknown]
  - Immune system disorder [Unknown]
  - Mobility decreased [Unknown]
  - Balance disorder [Unknown]
  - Asthenia [Unknown]
  - Muscular weakness [Unknown]
  - Laboratory test abnormal [Unknown]
  - Gait disturbance [Unknown]
  - Off label use [Unknown]
